FAERS Safety Report 18391089 (Version 1)
Quarter: 2020Q4

REPORT INFORMATION
  Report Type: Spontaneous
  Country: US (occurrence: US)
  Receive Date: 20201016
  Receipt Date: 20201016
  Transmission Date: 20210114
  Serious: Yes (Hospitalization)
  Sender: FDA-Public Use
  Company Number: US-TORRENT-00010469

PATIENT
  Age: 22 Year
  Sex: Male

DRUGS (6)
  1. LEVETIRACETAM. [Concomitant]
     Active Substance: LEVETIRACETAM
     Indication: EPILEPTIC PSYCHOSIS
     Dosage: EXTENDED RELEASE
  2. QUETIAPINE. [Concomitant]
     Active Substance: QUETIAPINE
     Indication: EPILEPSY
     Dosage: IMMEDIATE RELEASE
  3. OXCARBAZEPINE. [Concomitant]
     Active Substance: OXCARBAZEPINE
     Indication: EPILEPTIC PSYCHOSIS
  4. LITHIUM. [Concomitant]
     Active Substance: LITHIUM
     Indication: EPILEPTIC PSYCHOSIS
     Dosage: UNKNOWN
  5. LACOSAMIDE. [Concomitant]
     Active Substance: LACOSAMIDE
     Indication: EPILEPTIC PSYCHOSIS
  6. ARIPIPRAZOLE. [Suspect]
     Active Substance: ARIPIPRAZOLE
     Indication: SCHIZOPHRENIA
     Dosage: 2 MG DAILY

REACTIONS (2)
  - Leukopenia [Unknown]
  - Neutropenia [Recovered/Resolved]
